FAERS Safety Report 8613353-5 (Version None)
Quarter: 2012Q3

REPORT INFORMATION
  Report Type: 
  Country: None (occurrence: None)
  Receive Date: 20120822
  Receipt Date: 20120806
  Transmission Date: 20120928
  Serious: Yes (Hospitalization)
  Sender: FDA-Public Use
  Company Number: US-009507513-2012SP036029

PATIENT

DRUGS (9)
  1. PRILOSEC [Suspect]
  2. METFORMIN [Concomitant]
  3. NADOLOL [Concomitant]
  4. CITALOPRAM HYDROBROMIDE [Concomitant]
  5. WARFARIN SODIUM [Suspect]
  6. [COMPOSITION UNSPECIFIED] [Concomitant]
  7. RAMIPRIL [Concomitant]
  8. VICTRELIS [Suspect]
     Indication: HEPATITIS C
     Dosage: 800 MG, TID
     Dates: start: 20120515, end: 20120629
  9. ACTOS [Concomitant]

REACTIONS (9)
  - DIARRHOEA [None]
  - THROMBOCYTOPENIA [None]
  - GASTROINTESTINAL HAEMORRHAGE [None]
  - MEDICATION RESIDUE [None]
  - HAEMATURIA [None]
  - DYSGEUSIA [None]
  - NO THERAPEUTIC RESPONSE [None]
  - OESOPHAGEAL VARICES HAEMORRHAGE [None]
  - HAEMORRHOIDAL HAEMORRHAGE [None]
